FAERS Safety Report 12603636 (Version 2)
Quarter: 2016Q3

REPORT INFORMATION
  Report Type: Spontaneous
  Country: None (occurrence: FR)
  Receive Date: 20160728
  Receipt Date: 20160826
  Transmission Date: 20161109
  Serious: Yes (Hospitalization, Other)
  Sender: FDA-Public Use
  Company Number: FR-MEDAC PHARMA, INC.-1055666

PATIENT
  Age: 74 Year
  Sex: Male
  Weight: 88 kg

DRUGS (7)
  1. FOLIC ACID. [Concomitant]
     Active Substance: FOLIC ACID
     Dates: start: 201510
  2. METOJECT [Suspect]
     Active Substance: METHOTREXATE SODIUM
     Indication: RHEUMATOID ARTHRITIS
     Route: 058
     Dates: start: 20150707, end: 201510
  3. FLECAINIDE ACETATE. [Concomitant]
     Active Substance: FLECAINIDE ACETATE
  4. NOVATREX NOS [Suspect]
     Active Substance: AZITHROMYCIN OR METHOTREXATE SODIUM
     Route: 048
     Dates: start: 2001
  5. PREDNISONE. [Concomitant]
     Active Substance: PREDNISONE
     Dates: start: 201510
  6. ELIQUIS [Concomitant]
     Active Substance: APIXABAN
     Dates: start: 201507
  7. PERINDOPRIL ERBUMINE. [Concomitant]
     Active Substance: PERINDOPRIL ERBUMINE
     Dates: start: 201510

REACTIONS (16)
  - Visual impairment [Unknown]
  - Dry eye [Not Recovered/Not Resolved]
  - Cardiac disorder [Unknown]
  - General physical health deterioration [Not Recovered/Not Resolved]
  - Glaucoma [Not Recovered/Not Resolved]
  - Atrial flutter [Recovered/Resolved with Sequelae]
  - Somnolence [Recovered/Resolved with Sequelae]
  - Cough [Not Recovered/Not Resolved]
  - Dizziness [Recovered/Resolved with Sequelae]
  - Limb discomfort [Recovered/Resolved with Sequelae]
  - Fall [Recovered/Resolved with Sequelae]
  - Rash [Recovered/Resolved with Sequelae]
  - Dyspnoea [Recovered/Resolved with Sequelae]
  - Conjunctivitis [Not Recovered/Not Resolved]
  - Bronchitis [Unknown]
  - Pharyngitis [Recovered/Resolved with Sequelae]

NARRATIVE: CASE EVENT DATE: 201511
